FAERS Safety Report 11896057 (Version 1)
Quarter: 2016Q1

REPORT INFORMATION
  Report Type: Spontaneous
  Country: US (occurrence: US)
  Receive Date: 20160107
  Receipt Date: 20160107
  Transmission Date: 20160526
  Serious: No
  Sender: FDA-Public Use
  Company Number: US-PFIZER INC-2015451109

PATIENT
  Age: 45 Year
  Sex: Female

DRUGS (1)
  1. XANAX [Suspect]
     Active Substance: ALPRAZOLAM
     Indication: ANXIETY
     Dosage: ONE HALF TABLET IN THE EVENING, OR AT NIGHT AS NEEDED
     Dates: start: 2014

REACTIONS (1)
  - Somnolence [Unknown]
